FAERS Safety Report 7274998-0 (Version None)
Quarter: 2011Q1

REPORT INFORMATION
  Report Type: 
  Country: None (occurrence: None)
  Receive Date: 20110204
  Receipt Date: 20110128
  Transmission Date: 20110831
  Serious: Yes (Other)
  Sender: FDA-Public Use
  Company Number: US-ROCHE-752364

PATIENT
  Sex: Female
  Weight: 59 kg

DRUGS (3)
  1. BONIVA [Suspect]
     Indication: OSTEOPOROSIS
     Route: 065
     Dates: start: 20100101, end: 20100601
  2. METOPROLOL [Concomitant]
     Route: 048
  3. DIAZEM [Concomitant]
     Route: 048

REACTIONS (4)
  - HYPOAESTHESIA [None]
  - ONYCHOMADESIS [None]
  - PAIN [None]
  - PAIN IN EXTREMITY [None]
